FAERS Safety Report 10601878 (Version 1)
Quarter: 2014Q4

REPORT INFORMATION
  Report Type: Spontaneous
  Country: US (occurrence: US)
  Receive Date: 20141124
  Receipt Date: 20141124
  Transmission Date: 20150529
  Serious: Yes (Other)
  Sender: FDA-Public Use
  Company Number: US-MYLANLABS-2014S1013760

PATIENT
  Age: 63 Year
  Sex: Female
  Weight: 54.43 kg

DRUGS (2)
  1. MAXZIDE [Suspect]
     Active Substance: HYDROCHLOROTHIAZIDE\TRIAMTERENE
     Indication: MIDDLE EAR EFFUSION
     Dosage: 37.5 MG,AM
     Route: 048
     Dates: start: 20140530, end: 20140602
  2. MAXZIDE [Suspect]
     Active Substance: HYDROCHLOROTHIAZIDE\TRIAMTERENE
     Indication: OFF LABEL USE

REACTIONS (1)
  - Hypersensitivity [Recovered/Resolved]

NARRATIVE: CASE EVENT DATE: 20140602
